FAERS Safety Report 5279801-6 (Version None)
Quarter: 2007Q1

REPORT INFORMATION
  Report Type: 
  Country: None (occurrence: None)
  Receive Date: 20061220
  Receipt Date: 20060223
  Transmission Date: 20070707
  Serious: Yes (Hospitalization)
  Sender: FDA-Public Use
  Company Number: PHEH2005US13363

PATIENT
  Age: 69 Year
  Sex: Female

DRUGS (5)
  1. AREDIA [Suspect]
     Indication: BREAST CANCER METASTATIC
     Dosage: 90 MG, ONCE/SINGLE
     Dates: start: 20040129
  2. DURAGESIC-100 [Concomitant]
  3. PERCOCET [Concomitant]
  4. PANTOPRAZOLE SODIUM [Concomitant]
  5. XANAX [Concomitant]

REACTIONS (4)
  - BLOOD URINE PRESENT [None]
  - CHILLS [None]
  - KIDNEY INFECTION [None]
  - PYREXIA [None]
